FAERS Safety Report 4596675-7 (Version None)
Quarter: 2005Q1

REPORT INFORMATION
  Report Type: 
  Country: None (occurrence: None)
  Receive Date: 20050228
  Receipt Date: 20050214
  Transmission Date: 20050727
  Serious: Yes (Hospitalization)
  Sender: FDA-Public Use
  Company Number: 2005020956

PATIENT
  Age: 68 Year
  Sex: Female
  Weight: 70 kg

DRUGS (10)
  1. CABERGOLINE [Suspect]
     Indication: PARKINSON'S DISEASE
     Dosage: 4 MG (4 MG, QD), ORAL
     Route: 048
     Dates: start: 20021023, end: 20041201
  2. MADOPAR (BENSERAZIDE HYDROCHLORIDE, LEVODOPA) [Concomitant]
  3. MESALAMINE [Concomitant]
  4. FUROSEMIDE [Concomitant]
  5. AMILORIDE W/HYDROCHLOROTHIAZIDE (AMILORIDE, HYDROCHLOROTHIAZIDE) [Concomitant]
  6. LEVODOPA W/BENSERAZIDE/ (BENSERAZIDE, LEVODOPA) [Concomitant]
  7. CLOPIDOGREL BISULFATE [Concomitant]
  8. CITALOPRAM (CITALOPRAM) [Concomitant]
  9. PAROXETINE HYDROCHLORIDE [Concomitant]
  10. VERAPAMIL [Concomitant]

REACTIONS (11)
  - AMAUROSIS FUGAX [None]
  - AORTIC INJURY [None]
  - AORTIC VALVE INCOMPETENCE [None]
  - CARDIAC FAILURE [None]
  - CONDITION AGGRAVATED [None]
  - LEFT VENTRICULAR FAILURE [None]
  - MITRAL VALVE INCOMPETENCE [None]
  - ORTHOPNOEA [None]
  - PARKINSON'S DISEASE [None]
  - PULMONARY HYPERTENSION [None]
  - VENTRICULAR HYPERTROPHY [None]
